FAERS Safety Report 8916141 (Version 2)
Quarter: 2013Q1

REPORT INFORMATION
  Report Type: Spontaneous
  Country: US (occurrence: US)
  Receive Date: 20121120
  Receipt Date: 20130308
  Transmission Date: 20140127
  Serious: No
  Sender: FDA-Public Use
  Company Number: US-ASTRAZENECA-2012SE85087

PATIENT
  Age: 79 Year
  Sex: Female
  Weight: 50.8 kg

DRUGS (20)
  1. NEXIUM [Suspect]
     Indication: GASTROOESOPHAGEAL REFLUX DISEASE
     Route: 048
     Dates: start: 2010, end: 2011
  2. NEXIUM [Suspect]
     Indication: GASTROOESOPHAGEAL REFLUX DISEASE
     Route: 048
     Dates: start: 2011
  3. NEXIUM [Suspect]
     Indication: GASTROOESOPHAGEAL REFLUX DISEASE
     Route: 048
  4. NEXIUM [Suspect]
     Indication: GASTROOESOPHAGEAL REFLUX DISEASE
     Route: 048
  5. METOPROLOL SUCCINATE [Suspect]
     Route: 048
  6. LISINOPRIL [Suspect]
     Route: 048
  7. PLAVIX [Suspect]
     Route: 048
  8. ATORVASTATIN CALCIUM [Concomitant]
     Route: 048
  9. ALPRAZOLAM [Concomitant]
     Route: 048
  10. REGLAN [Concomitant]
     Route: 048
  11. REGLAN [Concomitant]
     Route: 048
  12. FUROSEMIDE [Concomitant]
     Route: 048
  13. PERCOCET [Concomitant]
     Route: 048
  14. ESCITALOPRAM OXALATE [Concomitant]
     Route: 048
  15. GABAPENTIN [Concomitant]
     Route: 048
  16. LIDODERM [Concomitant]
     Dosage: 5 % , 3 PATCHES TO SHOULDER, HIP, RIGHT ARM, EXTERNALLY ONCE DAILY
  17. MIRALAX [Concomitant]
     Dosage: 17 GRAMS POWDER, 1 CAPFUL MIX IN 8 OUNCES OF FLUID ORALLY TWICE A DAY
  18. MIRALAX [Concomitant]
     Dosage: AS DIRECTED
     Route: 048
  19. NAMENDA [Concomitant]
     Route: 048
  20. METFORMIN HCL [Concomitant]
     Route: 048

REACTIONS (5)
  - Gastrooesophageal reflux disease [Unknown]
  - Drug hypersensitivity [Unknown]
  - Malaise [Unknown]
  - Off label use [Unknown]
  - Drug ineffective [Not Recovered/Not Resolved]
